FAERS Safety Report 14210467 (Version 2)
Quarter: 2018Q1

REPORT INFORMATION
  Report Type: Spontaneous
  Country: US (occurrence: US)
  Receive Date: 20171121
  Receipt Date: 20180102
  Transmission Date: 20180508
  Serious: No
  Sender: FDA-Public Use
  Company Number: US-GLAXOSMITHKLINE-US2017177045

PATIENT
  Sex: Male

DRUGS (2)
  1. VENTOLIN HFA [Suspect]
     Active Substance: ALBUTEROL SULFATE
     Dosage: UNK
  2. VENTOLIN HFA [Suspect]
     Active Substance: ALBUTEROL SULFATE
     Indication: ASTHMA
     Dosage: 1 PUFF(S), BID
     Dates: start: 2016

REACTIONS (3)
  - Product quality issue [Unknown]
  - Drug effect decreased [Not Recovered/Not Resolved]
  - Asthma [Not Recovered/Not Resolved]
